FAERS Safety Report 22156760 (Version 11)
Quarter: 2024Q4

REPORT INFORMATION
  Report Type: Spontaneous
  Country: CA (occurrence: CA)
  Receive Date: 20230330
  Receipt Date: 20241211
  Transmission Date: 20250115
  Serious: Yes (Hospitalization, Other)
  Sender: PFIZER
  Company Number: CA-PFIZER INC-202201253461

PATIENT
  Age: 62 Year
  Sex: Male
  Weight: 135 kg

DRUGS (4)
  1. RUXIENCE [Suspect]
     Active Substance: RITUXIMAB-PVVR
     Indication: Granulomatosis with polyangiitis
     Dosage: 1 G Q DAY 14 X 2 DOSES
     Route: 042
     Dates: start: 20221123
  2. RUXIENCE [Suspect]
     Active Substance: RITUXIMAB-PVVR
     Dosage: 1 G Q DAY 14 X 2 DOSES
     Route: 042
     Dates: start: 20221207
  3. RUXIENCE [Suspect]
     Active Substance: RITUXIMAB-PVVR
     Dosage: 1 G Q DAY 14 X 2 DOSES
     Route: 042
     Dates: start: 20221123, end: 20221207
  4. RUXIENCE [Suspect]
     Active Substance: RITUXIMAB-PVVR
     Dosage: 500 MG, EVERY 6 MONTH, 2 DOSE, NOT STARTED YET
     Route: 042

REACTIONS (8)
  - Diverticulitis [Unknown]
  - Abdominal pain [Unknown]
  - Neoplasm malignant [Unknown]
  - Gastrointestinal disorder [Unknown]
  - Tooth extraction [Unknown]
  - Pain in jaw [Unknown]
  - Off label use [Unknown]
  - Off label use [Unknown]

NARRATIVE: CASE EVENT DATE: 20220101
